FAERS Safety Report 6604429-2 (Version None)
Quarter: 2010Q1

REPORT INFORMATION
  Report Type: 
  Country: None (occurrence: None)
  Receive Date: 20100226
  Receipt Date: 20091005
  Transmission Date: 20100710
  Serious: No
  Sender: FDA-Public Use
  Company Number: A0810395A

PATIENT
  Age: 93 Year
  Sex: Female

DRUGS (5)
  1. LAMICTAL CD [Suspect]
     Route: 048
     Dates: end: 20090805
  2. ATENOLOL [Concomitant]
  3. HYDROCHLOROTHIAZIDE [Concomitant]
  4. COUMADIN [Concomitant]
  5. CALCIUM [Concomitant]

REACTIONS (1)
  - RASH [None]
